FAERS Safety Report 5392175-5 (Version None)
Quarter: 2007Q3

REPORT INFORMATION
  Report Type: 
  Country: None (occurrence: None)
  Receive Date: 20070717
  Receipt Date: 20070717
  Transmission Date: 20080115
  Serious: Yes (Other)
  Sender: FDA-Public Use
  Company Number: None

PATIENT
  Age: 75 Year
  Sex: Male
  Weight: 75 kg

DRUGS (15)
  1. TEMOZOLOMIDE [Suspect]
     Indication: GLIOBLASTOMA MULTIFORME
     Dosage: 150 MG/DAY, PO
     Route: 048
     Dates: start: 20070529
  2. PTK787/ZK222594 [Suspect]
     Indication: GLIOBLASTOMA MULTIFORME
     Dosage: 250MG/DAY, PO
     Route: 048
     Dates: start: 20070524
  3. RADIATION THERAPY [Concomitant]
  4. FRAGMIN [Concomitant]
  5. ALLOPURINOL [Concomitant]
  6. BISACODYL [Concomitant]
  7. COLACE [Concomitant]
  8. DEXAMETHASONE 0.5MG TAB [Concomitant]
  9. FOLIC ACID [Concomitant]
  10. LACTULOSE [Concomitant]
  11. PHENYTOIN [Concomitant]
  12. PROTONIX [Concomitant]
  13. RISPERDAL [Concomitant]
  14. SENNA [Concomitant]
  15. ZOFRAN [Concomitant]

REACTIONS (1)
  - DEEP VEIN THROMBOSIS [None]
